FAERS Safety Report 17027203 (Version 1)
Quarter: 2019Q4

REPORT INFORMATION
  Report Type: Spontaneous
  Country: US (occurrence: US)
  Receive Date: 20191010
  Receipt Date: 20191010
  Transmission Date: 20200122
  Serious: No
  Sender: FDA-Public Use
  Company Number: None

PATIENT
  Age: 42 Year
  Sex: Female

DRUGS (1)
  1. JADENU [Suspect]
     Active Substance: DEFERASIROX
     Route: 048
     Dates: start: 20160921

REACTIONS (4)
  - Anxiety [None]
  - Swelling [None]
  - Cardiac failure [None]
  - Heart rate increased [None]

NARRATIVE: CASE EVENT DATE: 20191010
